FAERS Safety Report 21318285 (Version 1)
Quarter: 2022Q3

REPORT INFORMATION
  Report Type: Spontaneous
  Country: US (occurrence: US)
  Receive Date: 20220911
  Receipt Date: 20220911
  Transmission Date: 20221026
  Serious: Yes (Other)
  Sender: FDA-Public Use
  Company Number: US-SA-SAC20220829000239

PATIENT
  Sex: Female

DRUGS (1)
  1. AUBAGIO [Suspect]
     Active Substance: TERIFLUNOMIDE
     Indication: Multiple sclerosis
     Dosage: 14 MG, QD
     Route: 048
     Dates: start: 201908

REACTIONS (6)
  - Multiple sclerosis relapse [Unknown]
  - Tremor [Unknown]
  - Feeling cold [Unknown]
  - Speech disorder [Unknown]
  - Sleep disorder [Unknown]
  - Therapeutic response decreased [Unknown]
